FAERS Safety Report 6091003-2 (Version None)
Quarter: 2009Q1

REPORT INFORMATION
  Report Type: 
  Country: None (occurrence: None)
  Receive Date: 20090218
  Receipt Date: 20090218
  Transmission Date: 20090719
  Serious: Yes (Hospitalization, Other)
  Sender: FDA-Public Use
  Company Number: None

PATIENT
  Age: 13 Year
  Sex: Male
  Weight: 79.8331 kg

DRUGS (1)
  1. SINGULAIR [Suspect]
     Indication: MULTIPLE ALLERGIES
     Dosage: CHEW + SWALLOW 1 TABLET DAILY PO
     Route: 048
     Dates: start: 20081113, end: 20090113

REACTIONS (14)
  - AGGRESSION [None]
  - ANXIETY DISORDER [None]
  - DEPRESSION [None]
  - FEELING ABNORMAL [None]
  - GASTRIC DISORDER [None]
  - GASTRIC ULCER [None]
  - HIATUS HERNIA [None]
  - MAJOR DEPRESSION [None]
  - MENTAL DISORDER [None]
  - MOOD ALTERED [None]
  - PANIC DISORDER [None]
  - SUICIDAL IDEATION [None]
  - THINKING ABNORMAL [None]
  - WEIGHT DECREASED [None]
